FAERS Safety Report 21663498 (Version 1)
Quarter: 2022Q4

REPORT INFORMATION
  Report Type: Spontaneous
  Country: US (occurrence: None)
  Receive Date: 20221129
  Receipt Date: 20221129
  Transmission Date: 20230113
  Serious: Yes (Hospitalization)
  Sender: FDA-Public Use
  Company Number: None

PATIENT
  Age: 45 Year
  Sex: Female
  Weight: 7759.15 kg

DRUGS (1)
  1. NEBIVOLOL [Suspect]
     Active Substance: NEBIVOLOL
     Indication: Hypertensive heart disease
     Dosage: FREQUENCY : DAILY;?
     Route: 048
     Dates: start: 20221025, end: 20221119

REACTIONS (3)
  - Hypertensive emergency [None]
  - Product substitution issue [None]
  - Adverse drug reaction [None]
